FAERS Safety Report 6369923-0 (Version None)
Quarter: 2009Q3

REPORT INFORMATION
  Report Type: 
  Country: None (occurrence: None)
  Receive Date: 20090923
  Receipt Date: 20071114
  Transmission Date: 20100115
  Serious: Yes (Hospitalization, Other)
  Sender: FDA-Public Use
  Company Number: US-ASTRAZENECA-2006UW09684

PATIENT
  Age: 4392 Day
  Sex: Female
  Weight: 74.8 kg

DRUGS (34)
  1. SEROQUEL [Suspect]
     Indication: BIPOLAR DISORDER
     Route: 048
     Dates: start: 20020101, end: 20051001
  2. SEROQUEL [Suspect]
     Route: 048
     Dates: start: 20041202
  3. SEROQUEL [Suspect]
     Route: 048
     Dates: start: 20041214, end: 20050210
  4. SEROQUEL [Suspect]
     Route: 048
     Dates: start: 20050218, end: 20050721
  5. SEROQUEL [Suspect]
     Route: 048
     Dates: start: 20051013
  6. SEROQUEL [Suspect]
     Route: 048
     Dates: start: 20060202, end: 20060405
  7. DEXEDRINE [Concomitant]
     Dates: start: 20020605, end: 20050210
  8. DEXEDRINE [Concomitant]
     Dosage: 5 MG DISPENSED
     Dates: start: 20031104
  9. DEXEDRINE [Concomitant]
     Dates: start: 20021101
  10. DEXEDRINE [Concomitant]
     Dates: start: 20030211
  11. CLONIDINE [Concomitant]
     Dosage: 0.1 MG ONE AND HALF TABLET DAILY AT NIGHT
     Dates: start: 20020605
  12. CLONIDINE [Concomitant]
     Dosage: 0. 1 MG HALF TABLET TWO TIMES A DAY AND ONE AND HALF TABLET DAILY AT NIGHT
     Dates: start: 20030211
  13. CLONIDINE [Concomitant]
     Dosage: 0.15 MG TO 0.05 MG TAPERING  OFF CLONIDINE
     Dates: start: 20040728, end: 20040804
  14. ZOLOFT [Concomitant]
     Dosage: 25 MG HALF ONCE DAILY FOR 1 WEEK
     Dates: start: 20030502
  15. ZOLOFT [Concomitant]
     Dates: start: 20030728, end: 20040420
  16. DEPAKOTE [Concomitant]
     Dates: start: 20040728
  17. DEPAKOTE ER [Concomitant]
     Dates: start: 20040915
  18. FOCALIN [Concomitant]
     Dates: start: 20050428
  19. FOCALIN XR [Concomitant]
     Dates: start: 20060112
  20. FOCALIN XR [Concomitant]
     Dates: start: 20060202, end: 20060405
  21. ABILIFY [Concomitant]
     Dates: start: 20060509
  22. ABILIFY [Concomitant]
     Dates: start: 20060922
  23. ABILIFY [Concomitant]
     Dates: start: 20061011
  24. ABILIFY [Concomitant]
     Dates: start: 20070807
  25. ABILIFY [Concomitant]
     Dates: start: 20071129
  26. ADDERALL XR 30 [Concomitant]
     Dates: start: 20041020
  27. ADDERALL XR 30 [Concomitant]
     Dates: start: 20070613
  28. ADDERALL XR 30 [Concomitant]
     Dates: start: 20071129
  29. TRAZODONE [Concomitant]
     Dates: start: 20070613
  30. LAMICTAL [Concomitant]
     Dosage: STARTER KIT
     Dates: start: 20050727
  31. LAMICTAL [Concomitant]
     Dates: start: 20050830, end: 20051213
  32. IMIPRAMINE HCL [Concomitant]
     Dosage: 50 MG HALF TABLET EVERYDAY AT BEDTIME
     Dates: start: 20040310
  33. IMIPRAMINE [Concomitant]
     Indication: ATTENTION DEFICIT/HYPERACTIVITY DISORDER
     Dates: start: 20040315
  34. IMIPRAMINE [Concomitant]
     Indication: OPPOSITIONAL DEFIANT DISORDER
     Dates: start: 20040315

REACTIONS (2)
  - DIABETIC KETOACIDOSIS [None]
  - TARDIVE DYSKINESIA [None]
